FAERS Safety Report 15804402 (Version 1)
Quarter: 2019Q1

REPORT INFORMATION
  Report Type: Spontaneous
  Country: US (occurrence: US)
  Receive Date: 20190109
  Receipt Date: 20190109
  Transmission Date: 20190417
  Serious: Yes (Other)
  Sender: FDA-Public Use
  Company Number: US-BAYER-2019-000330

PATIENT
  Age: 64 Year
  Sex: Male

DRUGS (5)
  1. SORAFENIB (RAF KINASE INHIBITOR) [Suspect]
     Active Substance: SORAFENIB
     Indication: HEPATOCELLULAR CARCINOMA
     Dosage: UNK
     Dates: start: 201311, end: 201404
  2. INTERFERON [Concomitant]
     Active Substance: INTERFERON
  3. RIBAVIRIN. [Concomitant]
     Active Substance: RIBAVIRIN
  4. TACROLIMUS. [Concomitant]
     Active Substance: TACROLIMUS
  5. BASILIXIMAB [Concomitant]
     Active Substance: BASILIXIMAB

REACTIONS (8)
  - Blood creatinine increased [None]
  - Periorbital oedema [None]
  - Thrombotic microangiopathy [None]
  - Focal segmental glomerulosclerosis [None]
  - Oedema peripheral [None]
  - Proteinuria [None]
  - Acute kidney injury [None]
  - Hypertension [Recovered/Resolved]
